FAERS Safety Report 7224307-8 (Version None)
Quarter: 2011Q1

REPORT INFORMATION
  Report Type: 
  Country: None (occurrence: None)
  Receive Date: 20110113
  Receipt Date: 20101230
  Transmission Date: 20110831
  Serious: Yes (Other)
  Sender: FDA-Public Use
  Company Number: RU-RANBAXY-2010R3-40821

PATIENT

DRUGS (1)
  1. OMEPRAZOLE+CLARITHROMYCIN+AMOXICILLIN [Suspect]
     Indication: GASTRIC ULCER
     Dosage: OMEPRAZOLE-40MG, CLARYTROMICIN-1000MG, AMOXICILLIN-2000MG
     Route: 048
     Dates: start: 20101225, end: 20101227

REACTIONS (5)
  - VOMITING [None]
  - DIARRHOEA [None]
  - SYNCOPE [None]
  - NAUSEA [None]
  - ABDOMINAL PAIN [None]
